FAERS Safety Report 20882235 (Version 1)
Quarter: 2022Q2

REPORT INFORMATION
  Report Type: Other
  Country: JP (occurrence: None)
  Receive Date: 20220527
  Receipt Date: 20220527
  Transmission Date: 20220721
  Serious: Yes (Hospitalization, Other)
  Sender: FDA-Public Use
  Company Number: JP-ROCHE-3031436

PATIENT
  Age: 78 Year
  Sex: Male
  Weight: 57 kg

DRUGS (6)
  1. RITUXIMAB [Suspect]
     Active Substance: RITUXIMAB
     Indication: Diffuse large B-cell lymphoma refractory
     Route: 041
     Dates: start: 20210726, end: 20211202
  2. POLATUZUMAB VEDOTIN [Suspect]
     Active Substance: POLATUZUMAB VEDOTIN
     Indication: Diffuse large B-cell lymphoma refractory
     Route: 042
     Dates: start: 20210727
  3. BENDAMUSTINE HYDROCHLORIDE [Suspect]
     Active Substance: BENDAMUSTINE HYDROCHLORIDE
     Indication: Diffuse large B-cell lymphoma
     Route: 042
     Dates: start: 20210720, end: 20211203
  4. BENDAMUSTINE HYDROCHLORIDE [Concomitant]
     Active Substance: BENDAMUSTINE HYDROCHLORIDE
     Route: 042
  5. ACYCLOVIR [Concomitant]
     Active Substance: ACYCLOVIR
  6. SULFAMETHOXAZOLE\TRIMETHOPRIM [Concomitant]
     Active Substance: SULFAMETHOXAZOLE\TRIMETHOPRIM

REACTIONS (4)
  - Cytomegalovirus enterocolitis [Recovered/Resolved]
  - Gastric ulcer [Recovered/Resolved]
  - White blood cell count decreased [Not Recovered/Not Resolved]
  - Cytomegalovirus test positive [Recovered/Resolved]

NARRATIVE: CASE EVENT DATE: 20211014
